FAERS Safety Report 4977717-3 (Version None)
Quarter: 2006Q1

REPORT INFORMATION
  Report Type: 
  Country: None (occurrence: None)
  Receive Date: 20060215
  Receipt Date: 20050512
  Transmission Date: 20060701
  Serious: No
  Sender: FDA-Public Use
  Company Number: MC200500425

PATIENT
  Sex: Male
  Weight: 69.7 kg

DRUGS (3)
  1. ANGIOMAX [Suspect]
     Indication: PERCUTANEOUS CORONARY INTERVENTION
     Dosage: 0.75 MG/KG, BOLUS, IV BOLUS
     Route: 040
     Dates: start: 20050510
  2. ANGIOMAX [Suspect]
     Indication: PERCUTANEOUS CORONARY INTERVENTION
     Dosage: 1.75 MG/KG, HR, INTRAVENOUS
     Route: 042
     Dates: start: 20050510, end: 20050510
  3. ASA (PRE LOADING) (ACETYLSALICYLIC ACID) [Concomitant]

REACTIONS (1)
  - THROMBOSIS [None]
